FAERS Safety Report 22321012 (Version 1)
Quarter: 2023Q2

REPORT INFORMATION
  Report Type: Spontaneous
  Country: US (occurrence: None)
  Receive Date: 20230512
  Receipt Date: 20230512
  Transmission Date: 20230721
  Serious: No
  Sender: FDA-Public Use
  Company Number: None

PATIENT
  Sex: Male

DRUGS (1)
  1. XELODA [Suspect]
     Active Substance: CAPECITABINE
     Dosage: FREQUENCY : TWICE A DAY;?
     Route: 048

REACTIONS (9)
  - Diarrhoea [None]
  - Vomiting [None]
  - Fatigue [None]
  - Therapy interrupted [None]
  - Skin discolouration [None]
  - Product dose omission in error [None]
  - Arthralgia [None]
  - Chest pain [None]
  - Pain [None]
